FAERS Safety Report 18035287 (Version 1)
Quarter: 2020Q3

REPORT INFORMATION
  Report Type: Spontaneous
  Country: US (occurrence: US)
  Receive Date: 20200716
  Receipt Date: 20200716
  Transmission Date: 20201103
  Serious: Yes (Hospitalization)
  Sender: FDA-Public Use
  Company Number: None

PATIENT
  Age: 50 Year
  Sex: Female
  Weight: 132.45 kg

DRUGS (10)
  1. STELARA [Suspect]
     Active Substance: USTEKINUMAB
  2. LOMOTIL [Concomitant]
     Active Substance: ATROPINE SULFATE\DIPHENOXYLATE HYDROCHLORIDE
  3. FOLIC ACID. [Suspect]
     Active Substance: FOLIC ACID
  4. PANTOPRAZOLE [Concomitant]
     Active Substance: PANTOPRAZOLE
  5. PREDNISONE. [Concomitant]
     Active Substance: PREDNISONE
  6. PROMETHAZINE [Concomitant]
     Active Substance: PROMETHAZINE HYDROCHLORIDE
  7. HYCOSCYAMINE SULFATE [Concomitant]
  8. IMODIUM [Concomitant]
     Active Substance: LOPERAMIDE HYDROCHLORIDE
  9. GABAPENTIN. [Concomitant]
     Active Substance: GABAPENTIN
  10. CYANOCOBALAMIN (VITAMIN B?12) [Concomitant]

REACTIONS (8)
  - Colitis [None]
  - Gastrointestinal haemorrhage [None]
  - Ulcer [None]
  - Inflammatory bowel disease [None]
  - Inflammation [None]
  - Condition aggravated [None]
  - Abdominal pain [None]
  - Proctalgia [None]

NARRATIVE: CASE EVENT DATE: 20190508
